FAERS Safety Report 24071771 (Version 1)
Quarter: 2024Q3

REPORT INFORMATION
  Report Type: Report from Study
  Country: CN (occurrence: CN)
  Receive Date: 20240710
  Receipt Date: 20240710
  Transmission Date: 20241017
  Serious: No
  Sender: ROCHE
  Company Number: CN-ROCHE-3579578

PATIENT
  Age: 71 Year
  Sex: Male
  Weight: 59.2 kg

DRUGS (5)
  1. ALECTINIB [Suspect]
     Active Substance: ALECTINIB
     Indication: Non-small cell lung cancer metastatic
     Route: 048
     Dates: start: 20210823
  2. ALECTINIB [Suspect]
     Active Substance: ALECTINIB
     Route: 048
     Dates: start: 20200105
  3. BICYCLOL [Concomitant]
     Active Substance: BICYCLOL
     Indication: Transaminases increased
     Route: 048
     Dates: start: 20220124, end: 20220205
  4. GLYCYRRHIZIN [Concomitant]
     Active Substance: GLYCYRRHIZIN
     Indication: Transaminases increased
     Route: 042
     Dates: start: 20211224, end: 20220128
  5. CERITINIB [Concomitant]
     Active Substance: CERITINIB
     Dates: start: 20211225, end: 20220221

REACTIONS (1)
  - Anaemia [Not Recovered/Not Resolved]

NARRATIVE: CASE EVENT DATE: 20210307
